FAERS Safety Report 7794314-5 (Version None)
Quarter: 2011Q4

REPORT INFORMATION
  Report Type: 
  Country: None (occurrence: None)
  Receive Date: 20111004
  Receipt Date: 20110928
  Transmission Date: 20120403
  Serious: Yes (Hospitalization)
  Sender: FDA-Public Use
  Company Number: US-SANOFI-AVENTIS-2011SA030370

PATIENT
  Age: 54 Year
  Sex: Female
  Weight: 58.18 kg

DRUGS (7)
  1. ALAVERT [Concomitant]
  2. PLAQUENIL [Suspect]
     Indication: SCLERODERMA
     Route: 048
     Dates: start: 20100807, end: 20100901
  3. ESTROGEL [Concomitant]
     Indication: NIGHT SWEATS
     Dates: start: 20080101, end: 20100908
  4. PLAQUENIL [Suspect]
     Indication: CREST SYNDROME
     Route: 048
     Dates: start: 20100807, end: 20100901
  5. PRILOSEC [Concomitant]
     Indication: CREST SYNDROME
     Dates: start: 20050101
  6. MAXALT /USA/ [Concomitant]
     Indication: MIGRAINE
  7. NEXIUM [Concomitant]

REACTIONS (15)
  - HYPERSENSITIVITY [None]
  - SWELLING [None]
  - GAIT DISTURBANCE [None]
  - PHOTOSENSITIVITY REACTION [None]
  - ALOPECIA [None]
  - PRURITUS [None]
  - SKIN EXFOLIATION [None]
  - SLEEP DISORDER [None]
  - ARTHRITIS [None]
  - RASH [None]
  - NERVE INJURY [None]
  - PAIN [None]
  - SKIN DISCOLOURATION [None]
  - HYPERTENSION [None]
  - ERYTHEMA [None]
